FAERS Safety Report 5587002-7 (Version None)
Quarter: 2008Q1

REPORT INFORMATION
  Report Type: 
  Country: None (occurrence: None)
  Receive Date: 20080110
  Receipt Date: 20080103
  Transmission Date: 20080703
  Serious: Yes (Hospitalization)
  Sender: FDA-Public Use
  Company Number: A0701494A

PATIENT
  Age: 53 Year
  Sex: Female
  Weight: 73.8 kg

DRUGS (9)
  1. LAPATINIB [Suspect]
     Indication: BREAST CANCER METASTATIC
     Dosage: 1000MG PER DAY
     Route: 048
     Dates: start: 20070808
  2. PACLITAXEL [Suspect]
     Indication: BREAST CANCER METASTATIC
     Dosage: 80MGM2 CYCLIC
     Route: 042
     Dates: start: 20070808
  3. TRASTUZUMAB [Suspect]
     Indication: BREAST CANCER METASTATIC
     Dosage: 4MGK WEEKLY
     Route: 042
     Dates: start: 20070808
  4. ZOMETA [Concomitant]
     Indication: BREAST CANCER METASTATIC
     Dosage: 4MG MONTHLY
     Route: 042
     Dates: start: 20070806
  5. HYDROCHLOROTHIAZIDE [Concomitant]
     Indication: HYPERTENSION
     Dosage: 80MG PER DAY
     Route: 048
  6. LOPERAMIDE HCL [Concomitant]
     Indication: DIARRHOEA
     Dosage: 4MG PER DAY
     Route: 048
     Dates: start: 20070808
  7. MICARDIS [Concomitant]
     Indication: HYPERTENSION
     Dosage: 40MG PER DAY
     Route: 048
  8. PERCOCET [Concomitant]
     Indication: PAIN
     Dosage: 330MG AS REQUIRED
     Route: 048
     Dates: start: 20070905
  9. RESTORIL [Concomitant]
     Indication: INSOMNIA
     Dosage: 30MG AS REQUIRED
     Route: 048
     Dates: start: 20071025

REACTIONS (7)
  - BONE PAIN [None]
  - DECREASED APPETITE [None]
  - DEHYDRATION [None]
  - FATIGUE [None]
  - HYPOTENSION [None]
  - LETHARGY [None]
  - NEUROPATHY PERIPHERAL [None]
